FAERS Safety Report 14158314 (Version 2)
Quarter: 2017Q4

REPORT INFORMATION
  Report Type: Spontaneous
  Country: GB (occurrence: ES)
  Receive Date: 20171103
  Receipt Date: 20171107
  Transmission Date: 20180321
  Serious: Yes (Hospitalization)
  Sender: FDA-Public Use
  Company Number: GB-PFIZER INC-2017471184

PATIENT
  Age: 64 Year
  Sex: Male

DRUGS (2)
  1. FUSIDIC ACID [Concomitant]
     Active Substance: FUSIDIC ACID
     Indication: ARTHRITIS BACTERIAL
     Dosage: UNK
  2. DOXYCYCLINE HYCLATE. [Suspect]
     Active Substance: DOXYCYCLINE HYCLATE
     Indication: ARTHRITIS BACTERIAL
     Dosage: 100 MG, 2X/DAY

REACTIONS (3)
  - Photosensitivity reaction [Recovered/Resolved]
  - Blister [Recovered/Resolved]
  - Rash erythematous [Recovered/Resolved]
